FAERS Safety Report 8803999 (Version 2)
Quarter: 2012Q4

REPORT INFORMATION
  Report Type: 
  Country: US (occurrence: US)
  Receive Date: 20120924
  Receipt Date: 20121024
  Transmission Date: 20130627
  Serious: Yes (Other)
  Sender: FDA-Public Use
  Company Number: US-GLAXOSMITHKLINE-A0993856A

PATIENT
  Age: 71 Year
  Sex: Female

DRUGS (5)
  1. FLOVENT [Suspect]
     Indication: ASTHMA
     Dosage: 1PUFF Twice per day
     Route: 055
     Dates: start: 200809
  2. LISINOPRIL [Concomitant]
  3. NEXIUM [Concomitant]
  4. RANITIDINE [Concomitant]
  5. CLONAZEPAM [Concomitant]

REACTIONS (5)
  - Asthma [Recovering/Resolving]
  - Throat irritation [Not Recovered/Not Resolved]
  - Dysgeusia [Recovered/Resolved]
  - Drug ineffective [Not Recovered/Not Resolved]
  - Product quality issue [Unknown]
